FAERS Safety Report 12280311 (Version 1)
Quarter: 2016Q2

REPORT INFORMATION
  Report Type: Spontaneous
  Country: US (occurrence: US)
  Receive Date: 20160419
  Receipt Date: 20160419
  Transmission Date: 20160815
  Serious: Yes (Hospitalization)
  Sender: FDA-Public Use
  Company Number: US-HORIZON-RAV-0076-2016

PATIENT
  Age: 43 Year
  Sex: Female

DRUGS (2)
  1. RAVICTI [Suspect]
     Active Substance: GLYCEROL PHENYLBUTYRATE
     Indication: PRODUCT USED FOR UNKNOWN INDICATION
     Dosage: ONLY ONCE DAILY INSTEAD OF 3 ML TID
     Dates: start: 201502
  2. ARGININE [Concomitant]
     Active Substance: ARGININE
     Dosage: BID

REACTIONS (2)
  - Intentional product misuse [Unknown]
  - Hyperammonaemia [Recovered/Resolved]

NARRATIVE: CASE EVENT DATE: 20160404
